FAERS Safety Report 6538707-2 (Version None)
Quarter: 2010Q1

REPORT INFORMATION
  Report Type: 
  Country: None (occurrence: None)
  Receive Date: 20100113
  Receipt Date: 20100113
  Transmission Date: 20100710
  Serious: Yes (Death)
  Sender: FDA-Public Use
  Company Number: None

PATIENT
  Age: 71 Year
  Sex: Male
  Weight: 77.1115 kg

DRUGS (1)
  1. CIALIS [Suspect]
     Indication: ERECTILE DYSFUNCTION
     Dosage: 5 MG. 1 X DAY MOUTH
     Route: 048
     Dates: start: 20080801, end: 20090101

REACTIONS (7)
  - CEREBRAL HAEMORRHAGE [None]
  - DEPRESSION [None]
  - DIZZINESS [None]
  - FATIGUE [None]
  - HYPOAESTHESIA [None]
  - INSOMNIA [None]
  - PERSONALITY CHANGE [None]
